FAERS Safety Report 10665854 (Version 5)
Quarter: 2015Q3

REPORT INFORMATION
  Report Type: Spontaneous
  Country: FR (occurrence: FR)
  Receive Date: 20141219
  Receipt Date: 20150713
  Transmission Date: 20151125
  Serious: Yes (Hospitalization)
  Sender: FDA-Public Use
  Company Number: FR-009507513-1412FRA008981

PATIENT
  Age: 25 Year
  Sex: Female

DRUGS (5)
  1. CELESTENE 4MG/1ML [Suspect]
     Active Substance: BETAMETHASONE
     Indication: THREATENED LABOUR
     Dosage: 12 MG THREE TIMES A DAY
     Route: 030
     Dates: start: 20141127, end: 20141127
  2. MOPRAL (OMEPRAZOLE) [Concomitant]
     Active Substance: OMEPRAZOLE SODIUM
     Dosage: UNK
     Route: 048
     Dates: start: 20141023, end: 20141120
  3. TRIMETHYLPHLOROGLUCINOL [Concomitant]
     Active Substance: 1,3,5-TRIMETHOXYBENZENE
     Dosage: UNK
     Route: 048
     Dates: start: 20141023, end: 20141120
  4. GYNO-PEVARYL [Concomitant]
     Active Substance: ECONAZOLE NITRATE
     Dosage: FORMULATION: OVULE (TOTAL DAILY DOSE: UNKNOWN)
     Route: 067
  5. ACETAMINOPHEN. [Concomitant]
     Active Substance: ACETAMINOPHEN
     Dosage: UNK
     Route: 048
     Dates: start: 20140123, end: 20141120

REACTIONS (4)
  - Drug administration error [Recovered/Resolved]
  - Hyperglycaemia [Recovered/Resolved]
  - Accidental overdose [Recovered/Resolved]
  - Exposure during pregnancy [Recovered/Resolved]

NARRATIVE: CASE EVENT DATE: 20141127
